FAERS Safety Report 12618170 (Version 1)
Quarter: 2016Q3

REPORT INFORMATION
  Report Type: Spontaneous
  Country: None (occurrence: DK)
  Receive Date: 20160803
  Receipt Date: 20160803
  Transmission Date: 20161109
  Serious: Yes (Other)
  Sender: FDA-Public Use
  Company Number: DK-MERCK KGAA-1055805

PATIENT

DRUGS (1)
  1. NOVOTHYROX [Suspect]
     Active Substance: LEVOTHYROXINE SODIUM

REACTIONS (15)
  - Enuresis [None]
  - Pain [None]
  - Dyspnoea [None]
  - Head discomfort [None]
  - Nausea [None]
  - Swelling [None]
  - Heart rate increased [None]
  - Dysarthria [None]
  - Hypoaesthesia [None]
  - Muscle spasms [None]
  - Muscle twitching [None]
  - Feeling cold [None]
  - Altered state of consciousness [None]
  - Hypertension [None]
  - Hyperhidrosis [None]
